FAERS Safety Report 5392230-X (Version None)
Quarter: 2007Q3

REPORT INFORMATION
  Report Type: 
  Country: None (occurrence: None)
  Receive Date: 20070720
  Receipt Date: 20070709
  Transmission Date: 20080115
  Serious: Yes (Hospitalization)
  Sender: FDA-Public Use
  Company Number: JP-ASTRAZENECA-2007AP04340

PATIENT
  Age: 59 Year
  Sex: Female

DRUGS (8)
  1. SEROQUEL [Suspect]
     Indication: SCHIZOPHRENIA
     Route: 048
     Dates: start: 20061212, end: 20070706
  2. RISPERDAL [Suspect]
     Route: 048
     Dates: end: 20070706
  3. LEXOTAN [Concomitant]
     Route: 048
     Dates: end: 20070706
  4. WYPAX [Concomitant]
     Route: 048
     Dates: end: 20070706
  5. PAXIL [Concomitant]
     Route: 048
     Dates: end: 20070706
  6. BIPERIDEN HYDROCHLORIDE TAB [Concomitant]
     Route: 048
     Dates: end: 20070706
  7. HALCION [Concomitant]
     Route: 048
     Dates: end: 20070706
  8. PALUX [Concomitant]

REACTIONS (1)
  - CELLULITIS [None]
